FAERS Safety Report 5330930-8 (Version None)
Quarter: 2007Q2

REPORT INFORMATION
  Report Type: 
  Country: None (occurrence: None)
  Receive Date: 20070522
  Receipt Date: 20070511
  Transmission Date: 20071010
  Serious: Yes (Other)
  Sender: FDA-Public Use
  Company Number: US-JNJFOC-20070503029

PATIENT
  Sex: Female

DRUGS (5)
  1. REMICADE [Suspect]
     Indication: PSORIASIS
     Route: 042
  2. GREEN TEA DIETARY SUPPLEMENT [Concomitant]
  3. BENADRYL [Concomitant]
     Indication: PRURITUS
  4. IBUPROFEN [Concomitant]
  5. NANO DIETARY SUPPLEMENT [Concomitant]

REACTIONS (3)
  - BLOOD IRON DECREASED [None]
  - FATIGUE [None]
  - PLATELET COUNT DECREASED [None]
